FAERS Safety Report 20049809 (Version 1)
Quarter: 2021Q4

REPORT INFORMATION
  Report Type: Spontaneous
  Country: CA (occurrence: CA)
  Receive Date: 20211109
  Receipt Date: 20211109
  Transmission Date: 20220303
  Serious: Yes (Other)
  Sender: FDA-Public Use
  Company Number: CA-TEVA-2021-CA-1973864

PATIENT
  Age: 53 Year
  Sex: Female

DRUGS (21)
  1. PREGABALIN [Suspect]
     Active Substance: PREGABALIN
     Indication: Product used for unknown indication
     Route: 065
  2. INFLIXIMAB [Suspect]
     Active Substance: INFLIXIMAB
     Indication: Crohn^s disease
     Route: 042
  3. AMITRIPTYLINE [Concomitant]
     Active Substance: AMITRIPTYLINE
  4. BOTULINUM TOXIN TYPE A [Concomitant]
     Active Substance: BOTULINUM TOXIN TYPE A
  5. BUDESONIDE [Concomitant]
     Active Substance: BUDESONIDE
  6. BUDESONIDE\FORMOTEROL FUMARATE [Concomitant]
     Active Substance: BUDESONIDE\FORMOTEROL FUMARATE
  7. CALCITE [CALCIUM CARBONATE] [Concomitant]
     Dosage: 1 DOSAGE FORMS DAILY;
     Route: 048
  8. CALCIUM [Concomitant]
     Active Substance: CALCIUM
     Dosage: 1 DOSAGE FORMS DAILY;
     Route: 048
  9. DESOXIMETASONE [Concomitant]
     Active Substance: DESOXIMETASONE
     Indication: Enteritis
     Route: 048
  10. MIRTAZAPINE [Concomitant]
     Active Substance: MIRTAZAPINE
     Dosage: 30 MILLIGRAM DAILY;
     Route: 048
  11. MONTELUKAST [Concomitant]
     Active Substance: MONTELUKAST SODIUM
  12. NITROGLYCERIN [Concomitant]
     Active Substance: NITROGLYCERIN
     Route: 062
  13. NOVOGESIC [PARACETAMOL] [Concomitant]
  14. PANTOPRAZOLE [Concomitant]
     Active Substance: PANTOPRAZOLE
  15. ALBUTEROL [Concomitant]
     Active Substance: ALBUTEROL
  16. SITAGLIPTIN [Concomitant]
     Active Substance: SITAGLIPTIN
     Indication: Diabetes mellitus
  17. SPIRIVA [Concomitant]
     Active Substance: TIOTROPIUM BROMIDE MONOHYDRATE
  18. SUMATRIPTAN [Concomitant]
     Active Substance: SUMATRIPTAN
     Indication: Migraine
     Route: 048
  19. SYNTHROID [Concomitant]
     Active Substance: LEVOTHYROXINE SODIUM
  20. TOPIRAMATE [Concomitant]
     Active Substance: TOPIRAMATE
  21. VERAPAMIL [Concomitant]
     Active Substance: VERAPAMIL HYDROCHLORIDE

REACTIONS (2)
  - Gait disturbance [Not Recovered/Not Resolved]
  - Nodule [Not Recovered/Not Resolved]
